FAERS Safety Report 19865323 (Version 2)
Quarter: 2021Q4

REPORT INFORMATION
  Report Type: Spontaneous
  Country: US (occurrence: US)
  Receive Date: 20210921
  Receipt Date: 20211124
  Transmission Date: 20220303
  Serious: No
  Sender: FDA-Public Use
  Company Number: US-LUPIN PHARMACEUTICALS INC.-2021-17661

PATIENT
  Age: 79 Year
  Sex: Female

DRUGS (10)
  1. RIFAMPIN [Suspect]
     Active Substance: RIFAMPIN
     Indication: Mycobacterium avium complex infection
     Dosage: 600 MILLIGRAM, QD
     Route: 048
     Dates: start: 201910
  2. RIFAMPIN [Suspect]
     Active Substance: RIFAMPIN
     Indication: Genitourinary tract infection
  3. ETHAMBUTOL [Suspect]
     Active Substance: ETHAMBUTOL HYDROCHLORIDE
     Indication: Genitourinary tract infection
     Dosage: 1200 MILLIGRAM, QD
     Route: 048
     Dates: start: 201910
  4. ETHAMBUTOL [Suspect]
     Active Substance: ETHAMBUTOL HYDROCHLORIDE
     Indication: Mycobacterium avium complex infection
  5. CLARITHROMYCIN [Suspect]
     Active Substance: CLARITHROMYCIN
     Indication: Mycobacterium avium complex infection
     Dosage: 500 MILLIGRAM, BID
     Route: 048
     Dates: start: 201910
  6. CLARITHROMYCIN [Suspect]
     Active Substance: CLARITHROMYCIN
     Indication: Genitourinary tract infection
  7. SILVER NITRATE [Concomitant]
     Active Substance: SILVER NITRATE
     Indication: Candida infection
     Dosage: UNK
     Route: 065
     Dates: start: 2019, end: 2019
  8. SILVER NITRATE [Concomitant]
     Active Substance: SILVER NITRATE
     Indication: Mycobacterium avium complex infection
  9. SILVER NITRATE [Concomitant]
     Active Substance: SILVER NITRATE
     Indication: Genitourinary tract infection
  10. SILVER NITRATE [Concomitant]
     Active Substance: SILVER NITRATE
     Indication: Cystitis

REACTIONS (2)
  - Nausea [Unknown]
  - Gastrointestinal disorder [Unknown]

NARRATIVE: CASE EVENT DATE: 20190101
